FAERS Safety Report 15689072 (Version 2)
Quarter: 2018Q4

REPORT INFORMATION
  Report Type: Spontaneous
  Country: JP (occurrence: JP)
  Receive Date: 20181205
  Receipt Date: 20181214
  Transmission Date: 20190205
  Serious: No
  Sender: FDA-Public Use
  Company Number: JP-ABBVIE-18K-087-2552552-00

PATIENT
  Age: 65 Year
  Sex: Female

DRUGS (2)
  1. HUMIRA [Suspect]
     Active Substance: ADALIMUMAB
     Indication: PULMONARY SARCOIDOSIS
  2. HUMIRA [Suspect]
     Active Substance: ADALIMUMAB
     Indication: UVEITIS
     Route: 058

REACTIONS (2)
  - Hilar lymphadenopathy [Recovering/Resolving]
  - Lymphadenopathy mediastinal [Recovering/Resolving]

NARRATIVE: CASE EVENT DATE: 20181010
